APPROVED DRUG PRODUCT: FLEXERIL
Active Ingredient: CYCLOBENZAPRINE HYDROCHLORIDE
Strength: 10MG **Federal Register determination that product was not discontinued or withdrawn for safety or effectiveness reasons**
Dosage Form/Route: TABLET;ORAL
Application: N017821 | Product #002
Applicant: JANSSEN RESEARCH AND DEVELOPMENT LLC
Approved: Approved Prior to Jan 1, 1982 | RLD: Yes | RS: No | Type: DISCN